FAERS Safety Report 7715086-6 (Version None)
Quarter: 2011Q3

REPORT INFORMATION
  Report Type: 
  Country: None (occurrence: None)
  Receive Date: 20110829
  Receipt Date: 20110816
  Transmission Date: 20111222
  Serious: Yes (Hospitalization)
  Sender: FDA-Public Use
  Company Number: PHHY2011DE73598

PATIENT
  Sex: Male

DRUGS (2)
  1. ZOMETA [Suspect]
     Dosage: UNK
     Dates: start: 20110803
  2. ZOMETA [Suspect]
     Indication: PROSTATE CANCER
     Dosage: UNK
     Dates: start: 20110201

REACTIONS (2)
  - CARDIAC FAILURE [None]
  - CORONARY ARTERY DISEASE [None]
